FAERS Safety Report 13161557 (Version 2)
Quarter: 2017Q1

REPORT INFORMATION
  Report Type: Spontaneous
  Country: JP (occurrence: JP)
  Receive Date: 20170130
  Receipt Date: 20170215
  Transmission Date: 20170428
  Serious: Yes (Death, Other)
  Sender: FDA-Public Use
  Company Number: JP-009507513-1701JPN002165J

PATIENT
  Age: 5 Decade
  Sex: Female

DRUGS (2)
  1. E KEPPRA [Concomitant]
     Active Substance: LEVETIRACETAM
     Indication: BRAIN NEOPLASM
     Dosage: UNK
     Route: 048
     Dates: start: 201512, end: 201611
  2. TEMODAL [Suspect]
     Active Substance: TEMOZOLOMIDE
     Indication: OLIGOASTROCYTOMA
     Dosage: 150 MG/M2, QD
     Route: 048
     Dates: start: 20151208, end: 20161118

REACTIONS (2)
  - Tumour embolism [Fatal]
  - Gastric cancer [Fatal]

NARRATIVE: CASE EVENT DATE: 20161208
